FAERS Safety Report 6158004-7 (Version None)
Quarter: 2009Q2

REPORT INFORMATION
  Report Type: 
  Country: None (occurrence: None)
  Receive Date: 20090414
  Receipt Date: 20090414
  Transmission Date: 20091009
  Serious: Yes (Hospitalization)
  Sender: FDA-Public Use
  Company Number: None

PATIENT
  Sex: Female
  Weight: 28.5 kg

DRUGS (6)
  1. DAUNORUBICIN HCL [Suspect]
     Dosage: 102 MG
     Dates: end: 20090202
  2. METHOTREXATE [Suspect]
     Dosage: 30 MG
     Dates: end: 20090209
  3. PEG-L ASPARAGINASE (PEGASPARGASE, ONCOSPAR) [Suspect]
     Dosage: 2550 IU
     Dates: end: 20090115
  4. PREDNISONE [Suspect]
     Dosage: 1680 MG
     Dates: end: 20090208
  5. VINCRISTINE SULFATE [Suspect]
     Dosage: 6.1 MG
     Dates: end: 20090202
  6. CYTARABINE [Suspect]
     Dosage: 70 MG
     Dates: end: 20090112

REACTIONS (5)
  - EYE DISCHARGE [None]
  - EYE SWELLING [None]
  - FUNGAL RHINITIS [None]
  - STAPHYLOCOCCAL INFECTION [None]
  - STREPTOCOCCAL INFECTION [None]
